FAERS Safety Report 15127386 (Version 3)
Quarter: 2018Q3

REPORT INFORMATION
  Report Type: Spontaneous
  Country: US (occurrence: US)
  Receive Date: 20180710
  Receipt Date: 20180912
  Transmission Date: 20181010
  Serious: Yes (Death, Hospitalization, Other)
  Sender: FDA-Public Use
  Company Number: US-GILEAD-2018-0342537

PATIENT
  Age: 71 Year
  Sex: Female
  Weight: 66.8 kg

DRUGS (15)
  1. MITIGARE [Concomitant]
     Active Substance: COLCHICINE
  2. PROTONIX                           /00661201/ [Concomitant]
     Active Substance: OMEPRAZOLE
  3. BRILINTA [Concomitant]
     Active Substance: TICAGRELOR
  4. AMBRISENTAN [Suspect]
     Active Substance: AMBRISENTAN
     Indication: PRODUCT USED FOR UNKNOWN INDICATION
     Dosage: 10 MG, QD
     Route: 048
  5. ALLOPURINOL. [Concomitant]
     Active Substance: ALLOPURINOL
  6. ADCIRCA [Concomitant]
     Active Substance: TADALAFIL
  7. CARAFATE [Concomitant]
     Active Substance: SUCRALFATE
  8. ACTIGALL [Concomitant]
     Active Substance: URSODIOL
  9. ALBUTEROL                          /00139501/ [Concomitant]
     Active Substance: ALBUTEROL
  10. TOPROL XL [Concomitant]
     Active Substance: METOPROLOL SUCCINATE
  11. LEXAPRO [Concomitant]
     Active Substance: ESCITALOPRAM OXALATE
  12. AZELASTINE. [Concomitant]
     Active Substance: AZELASTINE HYDROCHLORIDE
  13. ELIQUIS [Concomitant]
     Active Substance: APIXABAN
  14. PLAQUENIL                          /00072602/ [Concomitant]
     Active Substance: HYDROXYCHLOROQUINE DIPHOSPHATE
  15. DILTIAZEM. [Concomitant]
     Active Substance: DILTIAZEM

REACTIONS (10)
  - Primary biliary cholangitis [Fatal]
  - Gastrointestinal haemorrhage [Unknown]
  - Hypophagia [Fatal]
  - Anaemia [Unknown]
  - Failure to thrive [Fatal]
  - Ascites [Recovered/Resolved]
  - Gastric ulcer [Unknown]
  - Aortic valve disease [Unknown]
  - Catheter site haematoma [Unknown]
  - Cellulitis [Unknown]

NARRATIVE: CASE EVENT DATE: 20180523
